FAERS Safety Report 5151394-3 (Version None)
Quarter: 2006Q4

REPORT INFORMATION
  Report Type: 
  Country: None (occurrence: None)
  Receive Date: 20061110
  Receipt Date: 20061110
  Transmission Date: 20070319
  Serious: Yes (Hospitalization)
  Sender: FDA-Public Use
  Company Number: None

PATIENT
  Age: 70 Year
  Sex: Male
  Weight: 83.6 kg

DRUGS (1)
  1. METOPROLOL SUCCINATE [Suspect]
     Indication: HYPERTENSION
     Dosage: 12.5 MG QD

REACTIONS (6)
  - CHEST PAIN [None]
  - LOSS OF CONSCIOUSNESS [None]
  - PALPITATIONS [None]
  - SINUS BRADYCARDIA [None]
  - SYNCOPE [None]
  - VERTIGO [None]
